FAERS Safety Report 8070853-7 (Version None)
Quarter: 2011Q4

REPORT INFORMATION
  Report Type: 
  Country: None (occurrence: None)
  Receive Date: 20111221
  Receipt Date: 20110103
  Transmission Date: 20120403
  Serious: Yes (Other)
  Sender: FDA-Public Use
  Company Number: PHHY2010US66566

PATIENT
  Age: 22 Year
  Sex: Male

DRUGS (1)
  1. EXJADE [Suspect]
     Indication: APLASTIC ANAEMIA
     Dosage: 1000 MG, BID, ORAL, 500 MG, BID, ORAL
     Route: 048

REACTIONS (3)
  - NAUSEA [None]
  - NASOPHARYNGITIS [None]
  - HEARING IMPAIRED [None]
